FAERS Safety Report 7193962-3 (Version None)
Quarter: 2010Q4

REPORT INFORMATION
  Report Type: 
  Country: None (occurrence: None)
  Receive Date: 20101223
  Receipt Date: 20101217
  Transmission Date: 20110411
  Serious: Yes (Death)
  Sender: FDA-Public Use
  Company Number: DE-TEVA-260587GER

PATIENT
  Age: 84 Year
  Sex: Male
  Weight: 110 kg

DRUGS (2)
  1. AMOXICILLIN-RATIOPHARM COMP (AMOXICILLIN/CLAVULANIC ACID) [Suspect]
     Dosage: 1 DF CONTAINING 875 MG AMOXICILLIN/125 MG CLAVULANIC ACID TWICE DAILY
     Route: 048
     Dates: start: 20101101
  2. VALORON N RETARD (TILIDINE PHOSPHATE, NALOXONE HCL) [Suspect]
     Dosage: 50 MG/4 MG
     Dates: start: 20101101

REACTIONS (3)
  - COMPLETED SUICIDE [None]
  - DEPRESSION [None]
  - SELF INJURIOUS BEHAVIOUR [None]
